FAERS Safety Report 4560588-7 (Version None)
Quarter: 2005Q1

REPORT INFORMATION
  Report Type: 
  Country: None (occurrence: None)
  Receive Date: 20050125
  Receipt Date: 20050117
  Transmission Date: 20050727
  Serious: Yes (Hospitalization)
  Sender: FDA-Public Use
  Company Number: JP-MERCK-0501USA03325

PATIENT
  Age: 88 Year
  Sex: Female

DRUGS (7)
  1. MOBIC [Concomitant]
     Indication: BACK PAIN
     Route: 048
     Dates: start: 20050107, end: 20050107
  2. FOSAMAX [Suspect]
     Indication: OSTEOPOROSIS
     Route: 048
     Dates: start: 20050107, end: 20050107
  3. DORNER [Concomitant]
     Route: 048
  4. SIGMART [Concomitant]
     Route: 048
  5. ASPIRIN [Concomitant]
     Route: 048
  6. MUCODYNE [Concomitant]
     Route: 048
  7. ZANTAC [Concomitant]
     Route: 048

REACTIONS (2)
  - ANOREXIA [None]
  - CHEST PAIN [None]
